FAERS Safety Report 24557562 (Version 2)
Quarter: 2024Q4

REPORT INFORMATION
  Report Type: Spontaneous
  Country: CN (occurrence: CN)
  Receive Date: 20241028
  Receipt Date: 20241105
  Transmission Date: 20250114
  Serious: Yes (Other)
  Sender: NOVARTIS
  Company Number: CN-002147023-NVSC2024CN208234

PATIENT
  Age: 49 Year
  Sex: Female
  Weight: 65 kg

DRUGS (1)
  1. AMLODIPINE\VALSARTAN [Suspect]
     Active Substance: AMLODIPINE\VALSARTAN
     Indication: Hypertension
     Dosage: 85 MG, QD
     Route: 048
     Dates: start: 20210708, end: 20241018

REACTIONS (3)
  - Orthostatic hypotension [Recovering/Resolving]
  - Palpitations [Unknown]
  - Vertigo [Unknown]

NARRATIVE: CASE EVENT DATE: 20221011
